FAERS Safety Report 13587120 (Version 1)
Quarter: 2017Q2

REPORT INFORMATION
  Report Type: Spontaneous
  Country: US (occurrence: US)
  Receive Date: 20170526
  Receipt Date: 20170526
  Transmission Date: 20170830
  Serious: No
  Sender: FDA-Public Use
  Company Number: US-BAYER-2017-089122

PATIENT
  Age: 78 Year
  Sex: Female
  Weight: 69 kg

DRUGS (5)
  1. CLARITIN [Suspect]
     Active Substance: LORATADINE
     Dosage: UNK
     Route: 048
  2. CITRACAL CALCIUM + D SLOW RELEASE 1200 [Suspect]
     Active Substance: CALCIUM CITRATE
     Dosage: 1 DF, BID
     Route: 048
     Dates: start: 2017, end: 2017
  3. EZETIMIBE. [Concomitant]
     Active Substance: EZETIMIBE
     Dosage: UNK
  4. ZETIA [Concomitant]
     Active Substance: EZETIMIBE
     Dosage: UNK
  5. CITRACAL CALCIUM + D SLOW RELEASE 1200 [Suspect]
     Active Substance: CALCIUM CITRATE
     Dosage: 2 DF, QD

REACTIONS (7)
  - Pruritus [Not Recovered/Not Resolved]
  - Flatulence [Unknown]
  - Product use issue [None]
  - Rash [Not Recovered/Not Resolved]
  - Rash [Not Recovered/Not Resolved]
  - Abdominal pain upper [Unknown]
  - Diarrhoea [Unknown]

NARRATIVE: CASE EVENT DATE: 2017
